FAERS Safety Report 7574829-5 (Version None)
Quarter: 2011Q2

REPORT INFORMATION
  Report Type: 
  Country: None (occurrence: None)
  Receive Date: 20110627
  Receipt Date: 20110609
  Transmission Date: 20111010
  Serious: Yes (Other)
  Sender: FDA-Public Use
  Company Number: BR-BAYER-201017609LA

PATIENT
  Age: 71 Year
  Sex: Male
  Weight: 63 kg

DRUGS (8)
  1. NEXAVAR [Suspect]
     Indication: HEPATIC NEOPLASM MALIGNANT
     Dosage: 400MG
     Route: 048
     Dates: start: 20100501, end: 20100615
  2. CAPTOPRIL [Concomitant]
  3. SERTRALINE HYDROCHLORIDE [Concomitant]
  4. ATENOLOL [Concomitant]
     Indication: HYPERTENSION
     Dosage: AS USED DOSE: UNK
     Route: 048
     Dates: start: 20000101
  5. NEXAVAR [Suspect]
     Dosage: 2 TABS TWICE A DAY
     Route: 048
     Dates: start: 20100616, end: 20110201
  6. PROPRANOLOL [Concomitant]
     Indication: HYPERTENSION
     Dosage: 1 DF, QD
     Route: 048
     Dates: start: 19960101
  7. CAPTOPRIL [Concomitant]
     Indication: HYPERTENSION
     Dosage: AS USED DOSE: UNK
     Route: 048
     Dates: start: 19960101
  8. SERTRALINE HYDROCHLORIDE [Concomitant]
     Indication: DEPRESSION
     Dosage: AS USED DOSE: UNK
     Route: 048
     Dates: start: 20010101

REACTIONS (8)
  - HEPATIC NEOPLASM [None]
  - BLOOD PRESSURE INCREASED [None]
  - WEIGHT DECREASED [None]
  - SYNCOPE [None]
  - DIARRHOEA [None]
  - PAIN IN EXTREMITY [None]
  - HYPERKERATOSIS [None]
  - DECREASED APPETITE [None]
